FAERS Safety Report 12582025 (Version 2)
Quarter: 2020Q3

REPORT INFORMATION
  Report Type: Report from Study
  Country: FR (occurrence: FR)
  Receive Date: 20160722
  Receipt Date: 20160904
  Transmission Date: 20201104
  Serious: Yes (Hospitalization)
  Sender: FDA-Public Use
  Company Number: FR-ROCHE-1791998

PATIENT
  Age: 76 Year
  Sex: Male
  Weight: 70 kg

DRUGS (20)
  1. OBINUTUZUMAB. [Suspect]
     Active Substance: OBINUTUZUMAB
     Indication: B-CELL LYMPHOMA
     Dosage: DAYS 1, 8, AND 15 OF CYCLE 1 AND ON DAY 1 OF SUBSEQUENT CYCLES. ON 30/JUN/2016, THE PATIENT RECEIVED
     Route: 042
     Dates: start: 20160630
  2. ARANESP [Concomitant]
     Active Substance: DARBEPOETIN ALFA
     Indication: ANAEMIA
     Route: 058
     Dates: start: 20160713
  3. CYCLOPHOSPHAMIDE. [Suspect]
     Active Substance: CYCLOPHOSPHAMIDE
     Indication: B-CELL LYMPHOMA
     Dosage: ON 30/JUN/2016, THE PATIENT RECEIVED THE MOST RECENT DOSE OF CYCLOPHOSPHAMIDE (1329 MG) PRIOR TO ONS
     Route: 042
     Dates: start: 20160630
  4. FUNGIZONE [Concomitant]
     Active Substance: AMPHOTERICIN B
     Indication: ORAL INFECTION
     Route: 048
     Dates: start: 20160629
  5. LOPERAMIDE [Concomitant]
     Active Substance: LOPERAMIDE
     Indication: CONSTIPATION
     Dosage: ND
     Route: 048
     Dates: start: 20160706, end: 20160706
  6. POLARAMINE [Concomitant]
     Active Substance: DEXCHLORPHENIRAMINE MALEATE
     Indication: PREMEDICATION
     Route: 042
     Dates: start: 20160630
  7. PARACETAMOL [Concomitant]
     Active Substance: ACETAMINOPHEN
     Indication: PREMEDICATION
     Route: 048
     Dates: start: 20160630
  8. PRIMPERAN [Concomitant]
     Active Substance: METOCLOPRAMIDE HYDROCHLORIDE
     Indication: INFUSION RELATED REACTION
     Route: 048
     Dates: start: 20160630, end: 20160630
  9. FORLAX [Concomitant]
     Active Substance: POLYETHYLENE GLYCOL 4000
     Indication: CONSTIPATION
     Dosage: 2 OTHER
     Route: 048
     Dates: start: 20160701, end: 20160706
  10. POLATUZUMAB VEDOTIN. [Suspect]
     Active Substance: POLATUZUMAB VEDOTIN
     Indication: B-CELL LYMPHOMA
     Dosage: ON 01/JUL/2016, THE PATIENT RECEIVED THE MOST RECENT DOSE OF POLATUZUMAB VEDOTIN (126 MG) PRIOR TO O
     Route: 042
     Dates: start: 20160701
  11. DOXORUBICIN [Suspect]
     Active Substance: DOXORUBICIN
     Indication: B-CELL LYMPHOMA
     Dosage: ON 30/JUN/2016, THE PATIENT RECEIVED THE MOST RECENT DOSE OF DOXORUBICIN (89 MG) PRIOR TO ONSET OF S
     Route: 042
     Dates: start: 20160630
  12. SODIUM BICARBONATE. [Concomitant]
     Active Substance: SODIUM BICARBONATE
     Indication: ORAL INFECTION
     Route: 048
     Dates: start: 20160629
  13. ZOMETA [Concomitant]
     Active Substance: ZOLEDRONIC ACID
     Indication: HYPERCALCAEMIA
     Route: 042
     Dates: start: 20160629, end: 20160629
  14. PREDNISONE. [Suspect]
     Active Substance: PREDNISONE
     Indication: B-CELL LYMPHOMA
     Dosage: ON 02/JUL/2016, THE PATIENT RECEIVED THE MOST RECENT DOSE OF PREDNISONE (100 MG) PRIOR TO ONSET OF S
     Route: 048
     Dates: start: 20160629
  15. HEXTRIL [Concomitant]
     Indication: ORAL INFECTION
     Route: 048
     Dates: start: 20160629
  16. EUPANTOL [Concomitant]
     Active Substance: PANTOPRAZOLE SODIUM
     Indication: OESOPHAGITIS
     Route: 048
     Dates: start: 20160629
  17. METOCLOPRAMIDE. [Concomitant]
     Active Substance: METOCLOPRAMIDE
     Indication: NAUSEA
     Dosage: ND
     Route: 042
     Dates: start: 20160707, end: 20160707
  18. SOLU?MEDROL [Concomitant]
     Active Substance: METHYLPREDNISOLONE SODIUM SUCCINATE
     Indication: INFUSION RELATED REACTION
     Route: 042
     Dates: start: 20160630, end: 20160630
  19. TRANXENE [Concomitant]
     Active Substance: CLORAZEPATE DIPOTASSIUM
     Indication: INFUSION RELATED REACTION
     Route: 048
     Dates: start: 20160630, end: 20160630
  20. MOPRAL [Concomitant]
     Active Substance: OMEPRAZOLE
     Indication: DYSPEPSIA
     Dosage: ND
     Route: 065
     Dates: start: 20160707, end: 20160707

REACTIONS (4)
  - Febrile neutropenia [Recovered/Resolved]
  - Asthenia [Recovered/Resolved]
  - Leukopenia [Recovered/Resolved]
  - Diarrhoea [Not Recovered/Not Resolved]

NARRATIVE: CASE EVENT DATE: 20160705
